FAERS Safety Report 25715161 (Version 1)
Quarter: 2025Q3

REPORT INFORMATION
  Report Type: Spontaneous
  Country: EU (occurrence: EU)
  Receive Date: 20250822
  Receipt Date: 20250822
  Transmission Date: 20251020
  Serious: Yes (Life-Threatening, Hospitalization)
  Sender: MYLAN
  Company Number: None

PATIENT
  Age: 70 Year
  Sex: Male

DRUGS (24)
  1. VALACYCLOVIR HYDROCHLORIDE [Suspect]
     Active Substance: VALACYCLOVIR HYDROCHLORIDE
     Indication: Infection prophylaxis
     Dosage: 500 MILLIGRAM, BID, 500 MG MORNING AND EVENING
     Dates: start: 202407, end: 202504
  2. VALACYCLOVIR HYDROCHLORIDE [Suspect]
     Active Substance: VALACYCLOVIR HYDROCHLORIDE
     Dosage: 500 MILLIGRAM, BID, 500 MG MORNING AND EVENING
     Route: 048
     Dates: start: 202407, end: 202504
  3. VALACYCLOVIR HYDROCHLORIDE [Suspect]
     Active Substance: VALACYCLOVIR HYDROCHLORIDE
     Dosage: 500 MILLIGRAM, BID, 500 MG MORNING AND EVENING
     Route: 048
     Dates: start: 202407, end: 202504
  4. VALACYCLOVIR HYDROCHLORIDE [Suspect]
     Active Substance: VALACYCLOVIR HYDROCHLORIDE
     Dosage: 500 MILLIGRAM, BID, 500 MG MORNING AND EVENING
     Dates: start: 202407, end: 202504
  5. PANTOPRAZOLE [Suspect]
     Active Substance: PANTOPRAZOLE
     Indication: Gastrooesophageal reflux disease
     Dosage: 1 DOSAGE FORM, QD, 1 PER DAY
     Dates: start: 202412, end: 202504
  6. PANTOPRAZOLE [Suspect]
     Active Substance: PANTOPRAZOLE
     Dosage: 1 DOSAGE FORM, QD, 1 PER DAY
     Route: 048
     Dates: start: 202412, end: 202504
  7. PANTOPRAZOLE [Suspect]
     Active Substance: PANTOPRAZOLE
     Dosage: 1 DOSAGE FORM, QD, 1 PER DAY
     Route: 048
     Dates: start: 202412, end: 202504
  8. PANTOPRAZOLE [Suspect]
     Active Substance: PANTOPRAZOLE
     Dosage: 1 DOSAGE FORM, QD, 1 PER DAY
     Dates: start: 202412, end: 202504
  9. BACTRIM [Suspect]
     Active Substance: SULFAMETHOXAZOLE\TRIMETHOPRIM
     Indication: Antibiotic prophylaxis
     Dosage: 1 DOSAGE FORM, QD, 1 TABLET PER DAY
     Dates: start: 202407, end: 202503
  10. BACTRIM [Suspect]
     Active Substance: SULFAMETHOXAZOLE\TRIMETHOPRIM
     Dosage: 1 DOSAGE FORM, QD, 1 TABLET PER DAY
     Route: 048
     Dates: start: 202407, end: 202503
  11. BACTRIM [Suspect]
     Active Substance: SULFAMETHOXAZOLE\TRIMETHOPRIM
     Dosage: 1 DOSAGE FORM, QD, 1 TABLET PER DAY
     Route: 048
     Dates: start: 202407, end: 202503
  12. BACTRIM [Suspect]
     Active Substance: SULFAMETHOXAZOLE\TRIMETHOPRIM
     Dosage: 1 DOSAGE FORM, QD, 1 TABLET PER DAY
     Dates: start: 202407, end: 202503
  13. HIZENTRA [Concomitant]
     Active Substance: HUMAN IMMUNOGLOBULIN G
     Indication: Immunodeficiency
     Dosage: 1 DOSAGE FORM, QW, 1 WEEKLY INJECTION
     Dates: start: 20250113
  14. HIZENTRA [Concomitant]
     Active Substance: HUMAN IMMUNOGLOBULIN G
     Dosage: 1 DOSAGE FORM, QW, 1 WEEKLY INJECTION
     Route: 058
     Dates: start: 20250113
  15. HIZENTRA [Concomitant]
     Active Substance: HUMAN IMMUNOGLOBULIN G
     Dosage: 1 DOSAGE FORM, QW, 1 WEEKLY INJECTION
     Route: 058
     Dates: start: 20250113
  16. HIZENTRA [Concomitant]
     Active Substance: HUMAN IMMUNOGLOBULIN G
     Dosage: 1 DOSAGE FORM, QW, 1 WEEKLY INJECTION
     Dates: start: 20250113
  17. DARZALEX [Concomitant]
     Active Substance: DARATUMUMAB
     Indication: Amyloidosis
     Dosage: 1 DOSAGE FORM, MONTHLY, 1 MONTHLY INJECTION
     Dates: start: 20250802
  18. DARZALEX [Concomitant]
     Active Substance: DARATUMUMAB
     Dosage: 1 DOSAGE FORM, MONTHLY, 1 MONTHLY INJECTION
     Route: 058
     Dates: start: 20250802
  19. DARZALEX [Concomitant]
     Active Substance: DARATUMUMAB
     Dosage: 1 DOSAGE FORM, MONTHLY, 1 MONTHLY INJECTION
     Route: 058
     Dates: start: 20250802
  20. DARZALEX [Concomitant]
     Active Substance: DARATUMUMAB
     Dosage: 1 DOSAGE FORM, MONTHLY, 1 MONTHLY INJECTION
     Dates: start: 20250802
  21. LORATADINE [Concomitant]
     Active Substance: LORATADINE
     Indication: Product used for unknown indication
     Dates: start: 20250227, end: 20250306
  22. LORATADINE [Concomitant]
     Active Substance: LORATADINE
     Route: 048
     Dates: start: 20250227, end: 20250306
  23. LORATADINE [Concomitant]
     Active Substance: LORATADINE
     Route: 048
     Dates: start: 20250227, end: 20250306
  24. LORATADINE [Concomitant]
     Active Substance: LORATADINE
     Dates: start: 20250227, end: 20250306

REACTIONS (1)
  - Agranulocytosis [Recovered/Resolved]

NARRATIVE: CASE EVENT DATE: 20250325
